FAERS Safety Report 20700058 (Version 1)
Quarter: 2022Q2

REPORT INFORMATION
  Report Type: Spontaneous
  Country: US (occurrence: None)
  Receive Date: 20220412
  Receipt Date: 20220412
  Transmission Date: 20220721
  Serious: No
  Sender: FDA-Public Use
  Company Number: 2022A133540

PATIENT
  Age: 40 Year
  Sex: Female

DRUGS (3)
  1. FARXIGA [Suspect]
     Active Substance: DAPAGLIFLOZIN PROPANEDIOL
     Route: 048
  2. ACETARSOL\NEOMYCIN\NYSTATIN\POLYMYXIN B SULFATE [Suspect]
     Active Substance: ACETARSOL\NEOMYCIN\NYSTATIN\POLYMYXIN B SULFATE
     Route: 065
  3. FARXIGA [Concomitant]
     Active Substance: DAPAGLIFLOZIN PROPANEDIOL

REACTIONS (3)
  - Fatigue [Recovering/Resolving]
  - Tachycardia [Recovering/Resolving]
  - Product use issue [Recovering/Resolving]
